FAERS Safety Report 18097014 (Version 1)
Quarter: 2020Q3

REPORT INFORMATION
  Report Type: Spontaneous
  Country: BR (occurrence: BR)
  Receive Date: 20200731
  Receipt Date: 20200731
  Transmission Date: 20201103
  Serious: Yes (Life-Threatening, Hospitalization, Other)
  Sender: FDA-Public Use
  Company Number: BR-LUPIN PHARMACEUTICALS INC.-2020-03816

PATIENT
  Age: 67 Year
  Sex: Male

DRUGS (7)
  1. MERONEM [Suspect]
     Active Substance: MEROPENEM
     Indication: COVID-19
     Dosage: 1000 MILLIGRAM (8/8 HS)
     Route: 065
  2. CLEXANE [Concomitant]
     Active Substance: ENOXAPARIN SODIUM
     Dosage: 60 MILLIGRAM, QD
     Route: 065
  3. HYDROXYCHLOROQUINE SULFATE. [Suspect]
     Active Substance: HYDROXYCHLOROQUINE SULFATE
     Indication: COVID-19
     Dosage: 400 MILLIGRAM, QD
     Route: 065
  4. CEFTRIAXONE. [Suspect]
     Active Substance: CEFTRIAXONE
     Indication: COVID-19
     Dosage: 2 GRAM, QD
     Route: 065
  5. CLEXANE [Concomitant]
     Active Substance: ENOXAPARIN SODIUM
     Indication: PROPHYLAXIS
     Dosage: 20 MILLIGRAM, QD
     Route: 065
  6. SULFAMETHOXAZOLE AND TRIMETHOPRIM [Suspect]
     Active Substance: SULFAMETHOXAZOLE\TRIMETHOPRIM
     Indication: COVID-19
     Dosage: UNK, 400 MG + 80 MG, 1.5 AMPULE, 8/8 HS) FOR TEN DAYS
     Route: 065
  7. AZITHROMYCIN ANHYDROUS. [Suspect]
     Active Substance: AZITHROMYCIN ANHYDROUS
     Indication: COVID-19
     Dosage: 500 MILLIGRAM, QD
     Route: 065

REACTIONS (2)
  - White blood cell count increased [Recovering/Resolving]
  - Off label use [Unknown]
